FAERS Safety Report 20578162 (Version 1)
Quarter: 2022Q1

REPORT INFORMATION
  Report Type: Spontaneous
  Country: US (occurrence: None)
  Receive Date: 20220310
  Receipt Date: 20220310
  Transmission Date: 20220423
  Serious: Yes (Life-Threatening)
  Sender: FDA-Public Use
  Company Number: None

PATIENT
  Age: 78 Year
  Sex: Male
  Weight: 95 kg

DRUGS (2)
  1. KETAMINE HYDROCHLORIDE [Suspect]
     Active Substance: KETAMINE HYDROCHLORIDE
     Indication: Sedation
     Dosage: FREQUENCY : ONCE;?
     Route: 042
     Dates: start: 20220201, end: 20220201
  2. LORAZEPAM [Suspect]
     Active Substance: LORAZEPAM
     Indication: Sedation
     Dosage: FREQUENCY : ONCE;?
     Route: 042
     Dates: start: 20220201, end: 20220201

REACTIONS (6)
  - Hypotension [None]
  - Respiratory depression [None]
  - Hypoxia [None]
  - Respiratory failure [None]
  - Pulseless electrical activity [None]
  - Pneumonia aspiration [None]

NARRATIVE: CASE EVENT DATE: 20220201
